FAERS Safety Report 6150103-9 (Version None)
Quarter: 2009Q2

REPORT INFORMATION
  Report Type: 
  Country: None (occurrence: None)
  Receive Date: 20090409
  Receipt Date: 20081025
  Transmission Date: 20091009
  Serious: Yes (Other)
  Sender: FDA-Public Use
  Company Number: US-PFIZER INC-2008078477

PATIENT
  Sex: Female
  Weight: 43.991 kg

DRUGS (3)
  1. CHANTIX [Suspect]
     Indication: EX-TOBACCO USER
     Dosage: 1 MG, 2X/DAY
     Route: 048
     Dates: start: 20080831, end: 20081001
  2. SURMONTIL [Suspect]
  3. XANAX [Concomitant]

REACTIONS (7)
  - DEPRESSION [None]
  - ERYTHEMA [None]
  - HYPERSENSITIVITY [None]
  - INTENTIONAL OVERDOSE [None]
  - RASH [None]
  - SUICIDE ATTEMPT [None]
  - SWELLING FACE [None]
